FAERS Safety Report 8912774 (Version 3)
Quarter: 2012Q4

REPORT INFORMATION
  Report Type: 
  Country: IT (occurrence: IT)
  Receive Date: 20121116
  Receipt Date: 20121204
  Transmission Date: 20130627
  Serious: Yes (Hospitalization)
  Sender: FDA-Public Use
  Company Number: IT-ROCHE-1155055

PATIENT
  Sex: Female

DRUGS (5)
  1. RIVOTRIL [Suspect]
     Indication: INTENTIONAL SELF-INJURY
     Dosage: tabs 0.5 mg
     Route: 048
     Dates: start: 20121110, end: 20121110
  2. DELORAZEPAM [Suspect]
     Indication: INTENTIONAL SELF-INJURY
     Route: 048
     Dates: start: 20121110, end: 20121110
  3. DEPAKIN [Suspect]
     Indication: PRODUCT USED FOR UNKNOWN INDICATION
     Route: 048
     Dates: start: 20121110, end: 20121110
  4. ALCOHOL [Concomitant]
  5. RAMIPRIL [Concomitant]

REACTIONS (4)
  - Abdominal pain [Recovering/Resolving]
  - Aphasia [Recovering/Resolving]
  - Intentional self-injury [Recovering/Resolving]
  - Somnolence [Recovering/Resolving]
